FAERS Safety Report 8565505-0 (Version None)
Quarter: 2012Q3

REPORT INFORMATION
  Report Type: 
  Country: None (occurrence: None)
  Receive Date: 20120724
  Receipt Date: 20120716
  Transmission Date: 20120928
  Serious: Yes (Other)
  Sender: FDA-Public Use
  Company Number: 2012AT000400

PATIENT
  Age: 14 Year
  Sex: Male

DRUGS (1)
  1. TESTOSTERONE [Suspect]
     Indication: HYPOGONADISM

REACTIONS (3)
  - IRRITABILITY [None]
  - DYSPHEMIA [None]
  - ANXIETY [None]
